FAERS Safety Report 21748854 (Version 1)
Quarter: 2022Q4

REPORT INFORMATION
  Report Type: Other
  Country: PT (occurrence: None)
  Receive Date: 20221219
  Receipt Date: 20221219
  Transmission Date: 20230113
  Serious: Yes (Hospitalization, Other)
  Sender: FDA-Public Use
  Company Number: PT-ROCHE-3241766

PATIENT
  Age: 26 Year
  Sex: Female

DRUGS (1)
  1. OCRELIZUMAB [Suspect]
     Active Substance: OCRELIZUMAB
     Indication: Multiple sclerosis
     Route: 065

REACTIONS (5)
  - Organising pneumonia [Recovering/Resolving]
  - Hypogammaglobulinaemia [Unknown]
  - COVID-19 [Not Recovered/Not Resolved]
  - Vaccination failure [Unknown]
  - Drug interaction [Unknown]
